FAERS Safety Report 17367000 (Version 2)
Quarter: 2020Q1

REPORT INFORMATION
  Report Type: Report from Study
  Country: DE (occurrence: JP)
  Receive Date: 20200204
  Receipt Date: 20200331
  Transmission Date: 20200409
  Serious: Yes (Other)
  Sender: FDA-Public Use
  Company Number: JP-ELI_LILLY_AND_COMPANY-JP202001013959

PATIENT
  Sex: Male

DRUGS (2)
  1. CETUXIMAB. [Suspect]
     Active Substance: CETUXIMAB
     Indication: LIP AND/OR ORAL CAVITY CANCER
     Dosage: UNK UNK, UNKNOWN
     Route: 041
     Dates: start: 201310, end: 201909
  2. PACLITAXEL. [Concomitant]
     Active Substance: PACLITAXEL
     Indication: LIP AND/OR ORAL CAVITY CANCER
     Dosage: UNK
     Dates: start: 201310, end: 201909

REACTIONS (5)
  - Paronychia [Unknown]
  - Mucosal inflammation [Unknown]
  - Bone marrow failure [Unknown]
  - Off label use [Unknown]
  - Dermatitis acneiform [Unknown]
